FAERS Safety Report 6490017-8 (Version None)
Quarter: 2009Q4

REPORT INFORMATION
  Report Type: 
  Country: None (occurrence: None)
  Receive Date: 20091211
  Receipt Date: 20091201
  Transmission Date: 20100525
  Serious: Yes (Life-Threatening, Hospitalization)
  Sender: FDA-Public Use
  Company Number: JP-JNJFOC-20091106948

PATIENT
  Sex: Female
  Weight: 45 kg

DRUGS (38)
  1. REMICADE [Suspect]
     Route: 042
     Dates: start: 20070808, end: 20090804
  2. REMICADE [Suspect]
     Route: 042
     Dates: start: 20070808, end: 20090804
  3. REMICADE [Suspect]
     Route: 042
     Dates: start: 20070808, end: 20090804
  4. REMICADE [Suspect]
     Route: 042
     Dates: start: 20070808, end: 20090804
  5. REMICADE [Suspect]
     Route: 042
     Dates: start: 20070808, end: 20090804
  6. REMICADE [Suspect]
     Route: 042
     Dates: start: 20070808, end: 20090804
  7. REMICADE [Suspect]
     Route: 042
     Dates: start: 20070808, end: 20090804
  8. REMICADE [Suspect]
     Route: 042
     Dates: start: 20070808, end: 20090804
  9. REMICADE [Suspect]
     Route: 042
     Dates: start: 20070808, end: 20090804
  10. REMICADE [Suspect]
     Route: 042
     Dates: start: 20070808, end: 20090804
  11. REMICADE [Suspect]
     Route: 042
     Dates: start: 20070808, end: 20090804
  12. REMICADE [Suspect]
     Route: 042
     Dates: start: 20070808, end: 20090804
  13. REMICADE [Suspect]
     Indication: BEHCET'S SYNDROME
     Route: 042
     Dates: start: 20070808, end: 20090804
  14. ANTIHISTAMINES [Concomitant]
     Route: 065
  15. ANTIHISTAMINES [Concomitant]
     Route: 065
  16. ANTIHISTAMINES [Concomitant]
     Route: 065
  17. ANTIHISTAMINES [Concomitant]
     Route: 065
  18. ANTIHISTAMINES [Concomitant]
     Route: 065
  19. ANTIHISTAMINES [Concomitant]
     Route: 065
  20. ANTIHISTAMINES [Concomitant]
     Indication: PROPHYLAXIS
     Route: 065
  21. ACETAMINOPHEN [Concomitant]
     Route: 065
  22. ACETAMINOPHEN [Concomitant]
     Route: 065
  23. ACETAMINOPHEN [Concomitant]
     Route: 065
  24. ACETAMINOPHEN [Concomitant]
     Route: 065
  25. ACETAMINOPHEN [Concomitant]
     Route: 065
  26. ACETAMINOPHEN [Concomitant]
     Route: 065
  27. ACETAMINOPHEN [Concomitant]
     Indication: PROPHYLAXIS
     Route: 065
  28. STEROIDS NOS [Concomitant]
     Route: 065
  29. STEROIDS NOS [Concomitant]
     Indication: PROPHYLAXIS
     Route: 065
  30. LOXONIN [Concomitant]
     Indication: PROPHYLAXIS
     Route: 048
  31. TALION [Concomitant]
     Indication: PROPHYLAXIS
     Route: 048
  32. SAXIZON [Concomitant]
     Indication: PROPHYLAXIS
     Route: 042
  33. NEORAL [Concomitant]
     Route: 048
  34. NEORAL [Concomitant]
     Route: 048
  35. NEORAL [Concomitant]
     Indication: BEHCET'S SYNDROME
     Route: 048
  36. CARNACULIN [Concomitant]
     Route: 048
  37. RINDERON [Concomitant]
     Route: 031
  38. MYDRIN-P [Concomitant]
     Route: 031

REACTIONS (6)
  - ALOPECIA [None]
  - CHEST PAIN [None]
  - INFUSION RELATED REACTION [None]
  - PRURITUS [None]
  - RASH [None]
  - THYROID CANCER [None]
